FAERS Safety Report 5497260-5 (Version None)
Quarter: 2007Q4

REPORT INFORMATION
  Report Type: 
  Country: None (occurrence: None)
  Receive Date: 20071025
  Receipt Date: 20061016
  Transmission Date: 20080405
  Serious: No
  Sender: FDA-Public Use
  Company Number: A0620872A

PATIENT
  Age: 78 Year
  Sex: Female

DRUGS (10)
  1. ADVAIR DISKUS 100/50 [Suspect]
     Dosage: 1PUFF TWICE PER DAY
     Route: 055
  2. ALBUTEROL [Concomitant]
  3. DIOVAN HCT [Concomitant]
  4. ALLEGRA [Concomitant]
  5. CHONDROITIN/GLUCOSAMINE [Concomitant]
  6. CALCIUM [Concomitant]
  7. FOSAMAX [Concomitant]
  8. ACIDOPHILIS [Concomitant]
  9. ASPIRIN [Concomitant]
  10. NASONEX [Concomitant]

REACTIONS (4)
  - ILL-DEFINED DISORDER [None]
  - INHALATION THERAPY [None]
  - MEDICATION ERROR [None]
  - WHEEZING [None]
